FAERS Safety Report 8135075 (Version 5)
Quarter: 2013Q2

REPORT INFORMATION
  Report Type: Spontaneous
  Country: US (occurrence: US)
  Receive Date: 20110914
  Receipt Date: 20130610
  Transmission Date: 20140414
  Serious: Yes (Death, Hospitalization)
  Sender: FDA-Public Use
  Company Number: US-JNJFOC-20110903431

PATIENT
  Age: 69 Year
  Sex: Male
  Weight: 79.92 kg

DRUGS (26)
  1. DOXORUBICIN HYDROCHLORIDE (DOXIL) [Suspect]
     Indication: PLASMA CELL MYELOMA
     Dosage: CYCLE 2 ON DAY 4
     Route: 042
  2. DOXORUBICIN HYDROCHLORIDE (DOXIL) [Suspect]
     Indication: PLASMA CELL MYELOMA
     Dosage: CYCLE 3 ON DAY 8
     Route: 042
  3. DOXORUBICIN HYDROCHLORIDE (DOXIL) [Suspect]
     Indication: PLASMA CELL MYELOMA
     Dosage: CYCLE 1 ON DAY 1
     Route: 042
     Dates: start: 20110426
  4. DOXORUBICIN HYDROCHLORIDE (DOXIL) [Suspect]
     Indication: PLASMA CELL MYELOMA
     Dosage: CYCLE 4, ON DAY 11
     Route: 042
     Dates: start: 20110721, end: 20110721
  5. VELCADE [Suspect]
     Indication: PLASMA CELL MYELOMA
     Dosage: CYCLE 1 ON DAY 1
     Route: 042
     Dates: start: 20110426
  6. VELCADE [Suspect]
     Indication: PLASMA CELL MYELOMA
     Dosage: CYCLE 4 ON DAY 11
     Route: 042
     Dates: start: 20110721
  7. VELCADE [Suspect]
     Indication: PLASMA CELL MYELOMA
     Dosage: CYCLE 3 ON DAY 8
     Route: 042
  8. VELCADE [Suspect]
     Indication: PLASMA CELL MYELOMA
     Dosage: CYCLE 2 ON DAY 4
     Route: 042
  9. DEXAMETHASONE [Suspect]
     Indication: PLASMA CELL MYELOMA
     Route: 048
     Dates: start: 20110721
  10. DEXAMETHASONE [Suspect]
     Indication: PLASMA CELL MYELOMA
     Route: 048
  11. DEXAMETHASONE [Suspect]
     Indication: PLASMA CELL MYELOMA
     Route: 048
  12. DEXAMETHASONE [Suspect]
     Indication: PLASMA CELL MYELOMA
     Route: 048
     Dates: start: 20110426
  13. DEXAMETHASONE [Suspect]
     Indication: PLASMA CELL MYELOMA
     Route: 042
  14. DEXAMETHASONE [Suspect]
     Indication: PLASMA CELL MYELOMA
     Route: 042
  15. DEXAMETHASONE [Suspect]
     Indication: PLASMA CELL MYELOMA
     Route: 042
     Dates: start: 20110721
  16. DEXAMETHASONE [Suspect]
     Indication: PLASMA CELL MYELOMA
     Route: 042
     Dates: start: 20110426
  17. ZOCOR [Concomitant]
     Indication: PRODUCT USED FOR UNKNOWN INDICATION
     Route: 065
  18. XANAX [Concomitant]
     Indication: ANXIETY
     Route: 065
  19. WELLBUTRIN [Concomitant]
     Indication: PRODUCT USED FOR UNKNOWN INDICATION
     Route: 065
  20. CYMBALTA [Concomitant]
     Indication: PRODUCT USED FOR UNKNOWN INDICATION
     Route: 065
  21. LEXAPRO [Concomitant]
     Indication: PRODUCT USED FOR UNKNOWN INDICATION
     Route: 065
  22. AMBIEN [Concomitant]
     Indication: PRODUCT USED FOR UNKNOWN INDICATION
     Dosage: AS REQUIRED
     Route: 065
  23. LASIX [Concomitant]
     Indication: PRODUCT USED FOR UNKNOWN INDICATION
     Dosage: ON DIALYSIS DAYS
     Route: 065
  24. COSOPT [Concomitant]
     Indication: PRODUCT USED FOR UNKNOWN INDICATION
     Route: 065
  25. PREVACID [Concomitant]
     Indication: PRODUCT USED FOR UNKNOWN INDICATION
     Route: 065
  26. ALLOPURINOL [Concomitant]
     Indication: PRODUCT USED FOR UNKNOWN INDICATION
     Route: 065

REACTIONS (5)
  - Chest pain [Unknown]
  - Blood creatinine increased [Unknown]
  - Loss of consciousness [Fatal]
  - Cardiac arrest [Fatal]
  - Fall [Not Recovered/Not Resolved]
